FAERS Safety Report 23076374 (Version 2)
Quarter: 2023Q4

REPORT INFORMATION
  Report Type: Spontaneous
  Country: US (occurrence: US)
  Receive Date: 20231017
  Receipt Date: 20231130
  Transmission Date: 20240109
  Serious: Yes (Other)
  Sender: FDA-Public Use
  Company Number: US-PPDUS-2023ST003631

PATIENT
  Age: 72 Year
  Sex: Female

DRUGS (1)
  1. ORSERDU [Suspect]
     Active Substance: ELACESTRANT
     Indication: Product used for unknown indication
     Dosage: 345 MG ONCE A DAY
     Route: 048
     Dates: start: 20230717

REACTIONS (5)
  - Disease progression [Unknown]
  - Metastases to spine [Unknown]
  - Metastases to bone [Unknown]
  - Gait inability [Unknown]
  - Pain [Unknown]
